FAERS Safety Report 19509858 (Version 1)
Quarter: 2021Q3

REPORT INFORMATION
  Report Type: Spontaneous
  Country: DE (occurrence: DE)
  Receive Date: 20210709
  Receipt Date: 20210709
  Transmission Date: 20211014
  Serious: Yes (Life-Threatening, Hospitalization)
  Sender: FDA-Public Use
  Company Number: DE-AUROBINDO-AUR-APL-2021-028798

PATIENT
  Age: 47 Year
  Sex: Male

DRUGS (11)
  1. ROCURONIUM BROMIDE. [Concomitant]
     Active Substance: ROCURONIUM BROMIDE
     Indication: PRODUCT USED FOR UNKNOWN INDICATION
     Dosage: UNK
     Route: 065
  2. AMIODARONE [Suspect]
     Active Substance: AMIODARONE
     Indication: VENTRICULAR TACHYCARDIA
     Dosage: 150 MILLIGRAM
     Route: 042
  3. FENTANYL. [Suspect]
     Active Substance: FENTANYL
     Indication: SEDATION
     Dosage: 0.5 MILLIGRAM
     Route: 042
  4. MAGNESIUM [Suspect]
     Active Substance: MAGNESIUM
     Indication: VENTRICULAR TACHYCARDIA
     Dosage: 2 GRAM, EVERY HOUR
     Route: 042
  5. METOPROLOL. [Suspect]
     Active Substance: METOPROLOL
     Dosage: 5 MILLIGRAM
     Route: 042
  6. MORPHINE [Suspect]
     Active Substance: MORPHINE
     Indication: SEDATION
     Dosage: 10 MILLIGRAM
     Route: 042
  7. PROPOFOL. [Suspect]
     Active Substance: PROPOFOL
     Indication: SEDATION
     Dosage: 60 MILLIGRAM
     Route: 042
  8. METOPROLOL. [Suspect]
     Active Substance: METOPROLOL
     Dosage: 5 MILLIGRAM
     Route: 042
  9. METOPROLOL. [Suspect]
     Active Substance: METOPROLOL
     Indication: VENTRICULAR TACHYCARDIA
     Dosage: 2 MILLIGRAM, EVERY HOUR
     Route: 042
  10. AMIODARONE [Suspect]
     Active Substance: AMIODARONE
     Indication: VENTRICULAR TACHYCARDIA
     Dosage: UNK (1050 MG/50ML INFUSION AT 5 ML/H)
     Route: 042
  11. METOPROLOL. [Suspect]
     Active Substance: METOPROLOL
     Indication: VENTRICULAR TACHYCARDIA
     Dosage: 5 MILLIGRAM
     Route: 042

REACTIONS (1)
  - Drug ineffective [Unknown]
